FAERS Safety Report 15169113 (Version 1)
Quarter: 2018Q3

REPORT INFORMATION
  Report Type: Spontaneous
  Country: DE (occurrence: DE)
  Receive Date: 20180720
  Receipt Date: 20180720
  Transmission Date: 20181010
  Serious: Yes (Hospitalization)
  Sender: FDA-Public Use
  Company Number: DE-TEVA-2018-DE-929068

PATIENT
  Sex: Female

DRUGS (2)
  1. CIPROFLOX 250MG [Suspect]
     Active Substance: CIPROFLOXACIN
     Route: 065
     Dates: start: 20180518, end: 20180522
  2. NIFURANTIN 100MG [Suspect]
     Active Substance: NITROFURANTOIN
     Route: 065
     Dates: start: 20180516, end: 20180518

REACTIONS (4)
  - Pruritus [Not Recovered/Not Resolved]
  - Erythema [Not Recovered/Not Resolved]
  - Hypersensitivity [Not Recovered/Not Resolved]
  - Body temperature increased [Not Recovered/Not Resolved]

NARRATIVE: CASE EVENT DATE: 20180518
